FAERS Safety Report 7791586-8 (Version None)
Quarter: 2011Q4

REPORT INFORMATION
  Report Type: 
  Country: None (occurrence: None)
  Receive Date: 20111003
  Receipt Date: 20110923
  Transmission Date: 20120403
  Serious: Yes (Other)
  Sender: FDA-Public Use
  Company Number: US-US-EMD SERONO, INC.-7085418

PATIENT
  Sex: Male

DRUGS (6)
  1. REBIF [Suspect]
     Indication: PRODUCT USED FOR UNKNOWN INDICATION
     Route: 058
     Dates: start: 20070917
  2. CYMBALTA [Concomitant]
     Indication: APATHY
  3. NUVIGIL [Concomitant]
     Indication: APATHY
  4. CYMBALTA [Concomitant]
     Indication: ASTHENIA
  5. NUVIGIL [Concomitant]
     Indication: ASTHENIA
  6. ATIVAN [Concomitant]

REACTIONS (3)
  - INJECTION SITE ERYTHEMA [None]
  - PAIN [None]
  - CARDIAC DISORDER [None]
